FAERS Safety Report 13360757 (Version 1)
Quarter: 2017Q1

REPORT INFORMATION
  Report Type: Report from Study
  Country: US (occurrence: US)
  Receive Date: 20170322
  Receipt Date: 20170322
  Transmission Date: 20170429
  Serious: Yes (Other)
  Sender: FDA-Public Use
  Company Number: US-VIFOR (INTERNATIONAL) INC.-VIT-2017-02833

PATIENT
  Sex: Female

DRUGS (1)
  1. VELTASSA [Suspect]
     Active Substance: PATIROMER
     Indication: PRODUCT USED FOR UNKNOWN INDICATION
     Route: 048
     Dates: start: 201702, end: 20170309

REACTIONS (5)
  - Abnormal faeces [Recovered/Resolved]
  - Constipation [Recovered/Resolved]
  - Faeces hard [Recovered/Resolved]
  - Dyschezia [Recovered/Resolved]
  - Intestinal obstruction [Recovered/Resolved]
